FAERS Safety Report 7703249-5 (Version None)
Quarter: 2011Q3

REPORT INFORMATION
  Report Type: 
  Country: None (occurrence: None)
  Receive Date: 20110823
  Receipt Date: 20110816
  Transmission Date: 20111222
  Serious: Yes (Other)
  Sender: FDA-Public Use
  Company Number: SE-AMGEN-SWESP2011040284

PATIENT
  Age: 56 Year
  Sex: Female

DRUGS (1)
  1. ENBREL [Suspect]
     Indication: PSORIATIC ARTHROPATHY
     Dosage: 50 MG, UNK
     Dates: start: 20110401, end: 20110510

REACTIONS (4)
  - ORAL VIRAL INFECTION [None]
  - IMPAIRED HEALING [None]
  - MOUTH ULCERATION [None]
  - HYPERSENSITIVITY [None]
